FAERS Safety Report 19736475 (Version 2)
Quarter: 2021Q3

REPORT INFORMATION
  Report Type: Report from Study
  Country: IT (occurrence: IT)
  Receive Date: 20210823
  Receipt Date: 20210901
  Transmission Date: 20211014
  Serious: Yes (Hospitalization)
  Sender: FDA-Public Use
  Company Number: IT-MYLANLABS-2021M1053282

PATIENT
  Age: 72 Year
  Sex: Female

DRUGS (11)
  1. XANAX [Concomitant]
     Active Substance: ALPRAZOLAM
     Indication: MIXED ANXIETY AND DEPRESSIVE DISORDER
     Dosage: 1 DOSAGE FORM
     Route: 048
  2. TAVOR (LORAZEPAM) [Concomitant]
     Active Substance: LORAZEPAM
     Indication: MIXED ANXIETY AND DEPRESSIVE DISORDER
     Dosage: 1 DOSAGE FORM
     Route: 048
  3. PANTOPRAZOLE [Concomitant]
     Active Substance: PANTOPRAZOLE
     Indication: GASTRIC ULCER
     Dosage: 1 DOSAGE FORM
     Route: 048
  4. LOSARTAN. [Interacting]
     Active Substance: LOSARTAN
     Indication: HYPERTENSION
     Dosage: 1 DOSAGE FORM, QD
     Route: 048
     Dates: end: 20210123
  5. NEBIVOLOL. [Concomitant]
     Active Substance: NEBIVOLOL
     Indication: HYPERTENSION
     Dosage: 1 DOSAGE FORM
     Route: 048
  6. ACETYLSALICYLIC ACID [Concomitant]
     Active Substance: ASPIRIN
     Indication: THROMBOSIS PROPHYLAXIS
     Dosage: 1 DOSAGE FORM
     Route: 048
  7. MOVICOL [Concomitant]
     Active Substance: POLYETHYLENE GLYCOL 3350\POTASSIUM CHLORIDE\SODIUM BICARBONATE\SODIUM CHLORIDE
     Indication: ASTRINGENT THERAPY
     Dosage: UNK
  8. HYDROCHLOROTHIAZIDE MYLAN [Suspect]
     Active Substance: HYDROCHLOROTHIAZIDE
     Indication: HYPERTENSION
     Dosage: 1 DOSAGE FORM, QD
     Route: 048
     Dates: end: 20210123
  9. LOSARTAN. [Concomitant]
     Active Substance: LOSARTAN
     Indication: HYPERTENSION
     Dosage: UNK
     Route: 048
  10. MADOPAR [Concomitant]
     Active Substance: BENSERAZIDE HYDROCHLORIDE\LEVODOPA
     Indication: PARKINSONISM
     Dosage: 2 DOSAGE FORM
     Route: 048
  11. EUTIROX [Concomitant]
     Active Substance: LEVOTHYROXINE SODIUM
     Indication: HYPOTHYROIDISM
     Dosage: 1 DOSAGE FORM
     Route: 048

REACTIONS (3)
  - Dysuria [Recovered/Resolved]
  - Hyponatraemia [Recovered/Resolved]
  - Drug interaction [Recovered/Resolved]

NARRATIVE: CASE EVENT DATE: 20210122
